FAERS Safety Report 7799595-X (Version None)
Quarter: 2011Q4

REPORT INFORMATION
  Report Type: 
  Country: None (occurrence: None)
  Receive Date: 20111006
  Receipt Date: 20110929
  Transmission Date: 20120403
  Serious: Yes (Hospitalization, Other)
  Sender: FDA-Public Use
  Company Number: NL-NOVOPROD-326794

PATIENT

DRUGS (6)
  1. GLICLAZIDE [Concomitant]
     Dosage: 24 MG, UNK
  2. VICTOZA [Suspect]
     Indication: TYPE 2 DIABETES MELLITUS
     Dosage: 0.6 MG, QD
     Route: 065
     Dates: start: 20101109, end: 20101118
  3. LOSARTAN POTASSIUM [Concomitant]
     Dosage: 100 MG, UNK
  4. SIMVASTATIN [Concomitant]
     Dosage: 40 MG, UNK
  5. METFORMIN HCL [Concomitant]
     Dosage: 2000 MG, UNK
  6. VICTOZA [Suspect]
     Dosage: 1.2 MG, QD
     Route: 065
     Dates: end: 20110322

REACTIONS (2)
  - ADENOMA BENIGN [None]
  - PANCREATIC CARCINOMA [None]
